FAERS Safety Report 25554198 (Version 2)
Quarter: 2025Q3

REPORT INFORMATION
  Report Type: Report from Study
  Country: US (occurrence: US)
  Receive Date: 20250715
  Receipt Date: 20250724
  Transmission Date: 20251020
  Serious: Yes (Hospitalization)
  Sender: EISAI
  Company Number: US-Eisai-EC-2025-193146

PATIENT
  Age: 80 Year

DRUGS (2)
  1. LENVATINIB [Suspect]
     Active Substance: LENVATINIB
     Indication: Thyroid cancer
  2. PEMBROLIZUMAB [Suspect]
     Active Substance: PEMBROLIZUMAB
     Indication: Thyroid cancer

REACTIONS (2)
  - Tracheal haemorrhage [Unknown]
  - Tracheal obstruction [Unknown]

NARRATIVE: CASE EVENT DATE: 20250703
